FAERS Safety Report 21295479 (Version 1)
Quarter: 2022Q3

REPORT INFORMATION
  Report Type: Report from Study
  Country: US (occurrence: US)
  Receive Date: 20220905
  Receipt Date: 20220905
  Transmission Date: 20221027
  Serious: Yes (Hospitalization, Other)
  Sender: FDA-Public Use
  Company Number: US-BRISTOL-MYERS SQUIBB COMPANY-2022-100459

PATIENT
  Age: 49 Year
  Sex: Male
  Weight: 80.42 kg

DRUGS (1)
  1. REVLIMID [Suspect]
     Active Substance: LENALIDOMIDE
     Indication: Plasma cell myeloma
     Dosage: 15 MG FOR 21 DAYS OF A 28 DAY CYCLE
     Route: 048
     Dates: start: 202010, end: 202207

REACTIONS (7)
  - Rotavirus infection [Unknown]
  - Influenza [Unknown]
  - Haemorrhoids [Unknown]
  - Escherichia infection [Unknown]
  - COVID-19 [Recovered/Resolved]
  - Diverticulitis [Recovering/Resolving]
  - Urinary tract infection [Unknown]

NARRATIVE: CASE EVENT DATE: 20210909
